FAERS Safety Report 6567547-3 (Version None)
Quarter: 2010Q1

REPORT INFORMATION
  Report Type: 
  Country: None (occurrence: None)
  Receive Date: 20100202
  Receipt Date: 20100120
  Transmission Date: 20100710
  Serious: Yes (Death, Other)
  Sender: FDA-Public Use
  Company Number: DE-ELI_LILLY_AND_COMPANY-DE200909000082

PATIENT
  Sex: Male
  Weight: 94 kg

DRUGS (17)
  1. ZYPADHERA [Suspect]
     Indication: PSYCHOTIC DISORDER
     Dosage: 300 MG, WEEKLY (1/W)
     Route: 030
     Dates: start: 20090730
  2. ZYPREXA [Concomitant]
     Indication: PSYCHOTIC DISORDER
     Dosage: 15 MG, UNKNOWN
     Route: 048
  3. ZYPREXA [Concomitant]
     Dosage: 10 MG, DAILY (1/D)
     Dates: start: 20090722
  4. ZYPREXA [Concomitant]
     Dosage: 15 MG, DAILY (1/D)
     Dates: start: 20090723
  5. ZYPREXA [Concomitant]
     Dosage: 20 MG, DAILY (1/D)
     Dates: start: 20090724, end: 20090730
  6. ZYPREXA [Concomitant]
     Dosage: 10 MG, DAILY (1/D)
     Dates: start: 20090731, end: 20090805
  7. ZYPREXA [Concomitant]
     Dosage: 5 MG, DAILY (1/D)
     Dates: start: 20090806, end: 20090808
  8. NEUROCIL [Concomitant]
     Dosage: 100 MG, DAILY (1/D)
     Dates: start: 20090723
  9. HALDOL [Concomitant]
     Dosage: 20 MG, DAILY (1/D)
     Dates: start: 20090723, end: 20090808
  10. HALDOL [Concomitant]
     Dosage: 10 MG, DAILY (1/D)
     Dates: start: 20090809, end: 20090815
  11. HALDOL [Concomitant]
     Dosage: 8 MG, DAILY (1/D)
     Dates: start: 20090816, end: 20090820
  12. HALDOL [Concomitant]
     Dosage: 5 MG, DAILY (1/D)
     Dates: start: 20090821, end: 20090824
  13. ALCOHOL [Concomitant]
  14. PIPAMPERON [Concomitant]
     Dosage: UNK, AS NEEDED
  15. PIPAMPERON [Concomitant]
     Dosage: 80 MG, DAILY (1/D)
     Dates: start: 20090722, end: 20090723
  16. LORAZEPAM [Concomitant]
     Dosage: UNK, AS NEEDED
     Dates: end: 20090723
  17. HEROIN [Concomitant]

REACTIONS (5)
  - ARTERIOSCLEROSIS [None]
  - ARTERIOSCLEROSIS CORONARY ARTERY [None]
  - BRAIN OEDEMA [None]
  - HEPATOMEGALY [None]
  - NARCOTIC INTOXICATION [None]
